FAERS Safety Report 5689229-2 (Version None)
Quarter: 2008Q1

REPORT INFORMATION
  Report Type: 
  Country: None (occurrence: None)
  Receive Date: 20080331
  Receipt Date: 20080324
  Transmission Date: 20080703
  Serious: Yes (Hospitalization)
  Sender: FDA-Public Use
  Company Number: JP-ROCHE-543874

PATIENT
  Age: 46 Year
  Sex: Male
  Weight: 77.8 kg

DRUGS (7)
  1. CAPECITABINE [Suspect]
     Indication: GASTRIC CANCER
     Dosage: FREQUENCY REPORTED AS D1-14Q3W. DATE OF LAST DOSE PRIOR TO SAE 22 JAN 2008. ROUTE REPORTED AS: BID +
     Route: 048
     Dates: start: 20071217, end: 20080122
  2. BLINDED BEVACIZUMAB [Suspect]
     Indication: GASTRIC CANCER
     Dosage: FREQUENCY REPORTED AS D1Q3W. DOSAGE FORM REPORTED AS INFUSION. DATE OF LAST DOSE PRIOR TO SAE 08 JA+
     Route: 042
     Dates: start: 20071217, end: 20080108
  3. CISPLATIN [Suspect]
     Indication: GASTRIC CANCER
     Dosage: FREQUENCY REPORTED AS D1Q3W. DOSAGE FORM REPORTED AS INFUSION. DATE OF LAST DOSE PRIOR TO SAE 08 JA+
     Route: 042
     Dates: start: 20071217, end: 20080108
  4. LOXOPROFEN SODIUM [Suspect]
     Indication: CANCER PAIN
     Route: 065
     Dates: start: 20071215, end: 20080129
  5. BENIDIPINE HYDROCHLORIDE [Concomitant]
     Dates: start: 20071219
  6. VALSARTAN [Concomitant]
     Dates: start: 20071225
  7. NERIPROCT [Concomitant]
     Dates: start: 20080107

REACTIONS (28)
  - ADENOCARCINOMA [None]
  - BILE DUCT STENOSIS [None]
  - BLOOD ALBUMIN DECREASED [None]
  - COLITIS [None]
  - CULTURE STOOL POSITIVE [None]
  - DISEASE PROGRESSION [None]
  - FLUID RETENTION [None]
  - GAMMA-GLUTAMYLTRANSFERASE INCREASED [None]
  - GASTRIC PERFORATION [None]
  - GASTROINTESTINAL INFLAMMATION [None]
  - HAEMATOCRIT DECREASED [None]
  - HAEMOGLOBIN DECREASED [None]
  - HAEMORRHOIDS [None]
  - HYPERTENSION [None]
  - ILEUS [None]
  - INTESTINAL OBSTRUCTION [None]
  - JAUNDICE [None]
  - LYMPHOCYTE COUNT DECREASED [None]
  - MALIGNANT ASCITES [None]
  - METASTASES TO LYMPH NODES [None]
  - PERITONITIS [None]
  - PLEURAL EFFUSION [None]
  - PROTEIN TOTAL DECREASED [None]
  - PYREXIA [None]
  - RED BLOOD CELL COUNT DECREASED [None]
  - RESPIRATORY FAILURE [None]
  - TUMOUR NECROSIS [None]
  - TUMOUR ULCERATION [None]
